FAERS Safety Report 4849964-2 (Version None)
Quarter: 2005Q4

REPORT INFORMATION
  Report Type: 
  Country: None (occurrence: None)
  Receive Date: 20051102
  Receipt Date: 20050822
  Transmission Date: 20060501
  Serious: No
  Sender: FDA-Public Use
  Company Number: 200511159BWH

PATIENT
  Age: 56 Year
  Sex: Male

DRUGS (1)
  1. LEVITRA [Suspect]
     Dosage: 40 MG, TOTAL DAILY, ORAL
     Route: 048
     Dates: start: 20050601

REACTIONS (2)
  - DRUG INEFFECTIVE [None]
  - NO ADVERSE DRUG EFFECT [None]
